FAERS Safety Report 5134095-7 (Version None)
Quarter: 2006Q4

REPORT INFORMATION
  Report Type: 
  Country: None (occurrence: None)
  Receive Date: 20061024
  Receipt Date: 20061019
  Transmission Date: 20070319
  Serious: Yes (Other)
  Sender: FDA-Public Use
  Company Number: US-BRISTOL-MYERS SQUIBB COMPANY-13547328

PATIENT

DRUGS (2)
  1. ORENCIA [Suspect]
  2. METHOTREXATE SODIUM [Suspect]

REACTIONS (1)
  - PNEUMONITIS [None]
